FAERS Safety Report 5197496-7 (Version None)
Quarter: 2006Q4

REPORT INFORMATION
  Report Type: 
  Country: None (occurrence: None)
  Receive Date: 20060926
  Receipt Date: 20060602
  Transmission Date: 20070319
  Serious: Yes (Other)
  Sender: FDA-Public Use
  Company Number: 2006071757

PATIENT
  Sex: Female

DRUGS (1)
  1. ADRIAMYCIN PFS [Suspect]
     Indication: ILL-DEFINED DISORDER
     Dosage: UNK (UNKNOWN), UNKNOWN

REACTIONS (1)
  - CARDIOTOXICITY [None]
